FAERS Safety Report 20261740 (Version 2)
Quarter: 2022Q1

REPORT INFORMATION
  Report Type: Spontaneous
  Country: FR (occurrence: FR)
  Receive Date: 20211231
  Receipt Date: 20220207
  Transmission Date: 20220423
  Serious: Yes (Death)
  Sender: FDA-Public Use
  Company Number: FR-TEVA-2021-FR-1992999

PATIENT
  Age: 43 Year
  Sex: Male

DRUGS (6)
  1. OXALIPLATIN [Suspect]
     Active Substance: OXALIPLATIN
     Indication: Adenocarcinoma of colon
     Dosage: 85MG/M2, VIA HEPATIC ARTERIAL INFUSION CATHETER, 28 CYCLES WERE DELIVERED FOR 1 YEAR
     Route: 050
     Dates: start: 201809, end: 202004
  2. DEFIBROTIDE [Suspect]
     Active Substance: DEFIBROTIDE (BOVINE)
     Indication: Venoocclusive liver disease
     Dosage: 25 MG/KG DAILY; 575MG EVERY 6 HOURS
     Route: 065
     Dates: start: 2020, end: 2020
  3. IRINOTECAN [Concomitant]
     Active Substance: IRINOTECAN
     Indication: Adenocarcinoma of colon
     Dosage: 180MG/M2, VIA HEPATIC ARTERIAL INFUSION CATHETER, 28 CYCLES WERE DELIVERED FOR 1 YEAR
     Route: 050
     Dates: start: 201809, end: 202004
  4. LEUCOVORIN [Concomitant]
     Active Substance: LEUCOVORIN
     Indication: Adenocarcinoma of colon
     Route: 042
     Dates: start: 201809
  5. FLUOROURACIL [Concomitant]
     Active Substance: FLUOROURACIL
     Indication: Adenocarcinoma of colon
     Route: 042
     Dates: start: 201809
  6. PANITUMUMAB [Concomitant]
     Active Substance: PANITUMUMAB
     Indication: Adenocarcinoma of colon
     Route: 065
     Dates: start: 201809

REACTIONS (4)
  - Venoocclusive liver disease [Fatal]
  - Hepatic failure [Fatal]
  - Drug ineffective [Fatal]
  - Off label use [Unknown]

NARRATIVE: CASE EVENT DATE: 20200101
